FAERS Safety Report 8278412-8 (Version None)
Quarter: 2012Q2

REPORT INFORMATION
  Report Type: 
  Country: None (occurrence: None)
  Receive Date: 20120412
  Receipt Date: 20110802
  Transmission Date: 20120825
  Serious: No
  Sender: FDA-Public Use
  Company Number: US-ASTRAZENECA-2010SE47132

PATIENT
  Age: 66 Year
  Sex: Female

DRUGS (5)
  1. NEXIUM [Suspect]
     Route: 048
  2. ROLAIDS [Concomitant]
  3. PREVACID [Concomitant]
  4. DIABETES MEDICATION [Concomitant]
  5. CALCIUM CARBONATE [Concomitant]

REACTIONS (12)
  - DRUG DOSE OMISSION [None]
  - VOMITING [None]
  - MALAISE [None]
  - TOOTHACHE [None]
  - ABDOMINAL PAIN UPPER [None]
  - DYSPEPSIA [None]
  - BEDRIDDEN [None]
  - CHEST PAIN [None]
  - PAIN [None]
  - HEADACHE [None]
  - APHAGIA [None]
  - GASTRITIS [None]
